FAERS Safety Report 15109090 (Version 2)
Quarter: 2018Q3

REPORT INFORMATION
  Report Type: Report from Study
  Country: None (occurrence: AU)
  Receive Date: 20180705
  Receipt Date: 20180706
  Transmission Date: 20181010
  Serious: Yes (Other)
  Sender: FDA-Public Use
  Company Number: AU-ABBVIE-18K-008-2407512-00

PATIENT
  Sex: Male

DRUGS (1)
  1. HUMIRA [Suspect]
     Active Substance: ADALIMUMAB
     Indication: CROHN^S DISEASE
     Route: 058
     Dates: start: 20180414

REACTIONS (4)
  - Hypoaesthesia [Unknown]
  - Gait disturbance [Unknown]
  - Gastrointestinal haemorrhage [Not Recovered/Not Resolved]
  - Pain in extremity [Unknown]

NARRATIVE: CASE EVENT DATE: 2018
